FAERS Safety Report 7021523-5 (Version None)
Quarter: 2010Q3

REPORT INFORMATION
  Report Type: 
  Country: None (occurrence: None)
  Receive Date: 20100928
  Receipt Date: 20100913
  Transmission Date: 20110219
  Serious: Yes (Hospitalization)
  Sender: FDA-Public Use
  Company Number: 2010-1920

PATIENT
  Age: 37 Year
  Sex: Female
  Weight: 68 kg

DRUGS (5)
  1. SOMATULINE DEPOT [Suspect]
     Indication: ACROMEGALY
     Dosage: (120 MG, 1 IN 4 WK),SUBCUTANEOUS
     Route: 058
     Dates: start: 20080901, end: 20100528
  2. SOMATULINE DEPOT [Suspect]
     Indication: ACROMEGALY
     Dosage: (120 MG, 1 IN 4 WK),SUBCUTANEOUS
     Route: 058
     Dates: start: 20100801
  3. SYNTHROID [Concomitant]
  4. CABERGOLINE [Concomitant]
  5. ZOLOFT [Concomitant]

REACTIONS (3)
  - CONDITION AGGRAVATED [None]
  - DEPRESSION [None]
  - SUICIDAL IDEATION [None]
